FAERS Safety Report 10244435 (Version 1)
Quarter: 2014Q2

REPORT INFORMATION
  Report Type: Spontaneous
  Country: DE (occurrence: DE)
  Receive Date: 20140618
  Receipt Date: 20140618
  Transmission Date: 20141212
  Serious: Yes (Other)
  Sender: FDA-Public Use
  Company Number: DE-TEVA-488957GER

PATIENT
  Sex: 0

DRUGS (2)
  1. CARBOPLATIN [Suspect]
     Route: 065
  2. PACLITAXEL [Suspect]
     Route: 065

REACTIONS (1)
  - Exudative retinopathy [Unknown]
